FAERS Safety Report 6927864-1 (Version None)
Quarter: 2010Q3

REPORT INFORMATION
  Report Type: 
  Country: None (occurrence: None)
  Receive Date: 20100817
  Receipt Date: 20100805
  Transmission Date: 20110219
  Serious: Yes (Death)
  Sender: FDA-Public Use
  Company Number: PT-PFIZER INC-2010098567

PATIENT
  Age: 74 Year
  Sex: Male
  Weight: 73 kg

DRUGS (9)
  1. SUTENT [Suspect]
     Indication: RENAL CELL CARCINOMA
     Dosage: 25 MG, 2X/DAY
     Route: 048
     Dates: start: 20100617, end: 20100706
  2. PAROXETINE MESILATE [Concomitant]
     Dosage: 20 MG, 1X/DAY
     Route: 048
  3. MIRTAZAPINE [Concomitant]
     Dosage: 30 MG, 1X/DAY
     Route: 048
  4. LEVODOPA [Concomitant]
     Dosage: 1 SINGLE DAILY DOSE
     Route: 048
  5. CARBIDOPA [Concomitant]
     Dosage: 1 SINGLE DAILY DOSE
     Route: 048
  6. BRINZOLAMIDE [Concomitant]
     Dosage: 2 DROPS/DAILY
     Route: 047
  7. TIMOLOL MALEATE [Concomitant]
     Dosage: 2 DROPS/DAILY
     Route: 047
  8. TRAVOPROST [Concomitant]
     Dosage: 2 DROPS/DAILY
     Route: 047
  9. BRIMONIDINE TARTRATE [Concomitant]
     Dosage: 2 DROPS/DAILY
     Route: 047

REACTIONS (3)
  - HYPOXIA [None]
  - INTERSTITIAL LUNG DISEASE [None]
  - RESPIRATORY FAILURE [None]
